FAERS Safety Report 16589538 (Version 4)
Quarter: 2019Q4

REPORT INFORMATION
  Report Type: Spontaneous
  Country: DE (occurrence: DE)
  Receive Date: 20190718
  Receipt Date: 20191105
  Transmission Date: 20200122
  Serious: Yes (Life-Threatening, Other)
  Sender: FDA-Public Use
  Company Number: DE-ACCORD-139006

PATIENT
  Age: 26 Year
  Sex: Female

DRUGS (4)
  1. LEVOSIMENDAN [Concomitant]
     Active Substance: LEVOSIMENDAN
     Dosage: 24-HOUR
  2. RAMIPRIL. [Suspect]
     Active Substance: RAMIPRIL
     Indication: CARDIAC FAILURE CONGESTIVE
  3. IMMUNOGLOBULINS [Concomitant]
     Indication: CARDIAC FAILURE CONGESTIVE
  4. METOPROLOL. [Concomitant]
     Active Substance: METOPROLOL
     Indication: CARDIAC FAILURE CONGESTIVE

REACTIONS (1)
  - Fibrinous bronchitis [Recovered/Resolved]
